FAERS Safety Report 5760764-1 (Version None)
Quarter: 2008Q2

REPORT INFORMATION
  Report Type: 
  Country: None (occurrence: None)
  Receive Date: 20080606
  Receipt Date: 20080530
  Transmission Date: 20081010
  Serious: Yes (Hospitalization)
  Sender: FDA-Public Use
  Company Number: PHHO2008IN04883

PATIENT
  Sex: Male
  Weight: 71.2 kg

DRUGS (4)
  1. BLINDED LAF237 LAF237+ [Suspect]
     Indication: TYPE 2 DIABETES MELLITUS
     Dosage: DOUBLE BLIND
     Route: 048
     Dates: start: 20071123
  2. BLINDED LMF237 LMF237+ [Suspect]
     Indication: TYPE 2 DIABETES MELLITUS
     Dosage: DOUBLE BLIND
     Route: 048
     Dates: start: 20071123
  3. BLINDED METFORMIN COMP-MTF+ [Suspect]
     Indication: TYPE 2 DIABETES MELLITUS
     Dosage: DOUBLE BLIND
     Route: 048
     Dates: start: 20071123
  4. BLINDED NO TREATMENT RECEIVED NOMED [Suspect]
     Indication: TYPE 2 DIABETES MELLITUS
     Dosage: DOUBLE BLIND
     Route: 048
     Dates: start: 20071123

REACTIONS (1)
  - JOINT DISLOCATION [None]
